FAERS Safety Report 6665438-0 (Version None)
Quarter: 2010Q2

REPORT INFORMATION
  Report Type: 
  Country: None (occurrence: None)
  Receive Date: 20100402
  Receipt Date: 20100324
  Transmission Date: 20101027
  Serious: Yes (Death)
  Sender: FDA-Public Use
  Company Number: JP-PFIZER INC-2009315100

PATIENT
  Age: 44 Year
  Sex: Female

DRUGS (12)
  1. SUNITINIB MALATE [Suspect]
     Indication: METASTATIC RENAL CELL CARCINOMA
     Dosage: 37.5 MG, 1X/DAY
     Route: 048
     Dates: start: 20080927, end: 20091202
  2. LOXONIN [Concomitant]
     Dosage: UNK
     Route: 048
  3. SELBEX [Concomitant]
     Dosage: UNK
     Route: 048
  4. PAROXETINE HYDROCHLORIDE [Concomitant]
     Dosage: UNK
     Route: 048
  5. ADONA (AC-17) [Concomitant]
     Dosage: UNK
     Route: 048
  6. MAGNESIUM OXIDE [Concomitant]
     Dosage: UNK
     Route: 048
  7. OMEPRAL [Concomitant]
     Dosage: UNK
     Route: 048
  8. RINDERON #1 [Concomitant]
     Dosage: UNK
     Route: 048
  9. RIVOTRIL [Concomitant]
     Dosage: UNK
     Route: 048
     Dates: start: 20081216
  10. ATARAX [Concomitant]
     Dosage: UNK
     Route: 048
     Dates: start: 20081201
  11. DECADRON [Concomitant]
     Dosage: UNK
     Route: 048
     Dates: start: 20090130
  12. FENTANYL [Concomitant]
     Indication: RENAL CELL CARCINOMA
     Dosage: 8.4 MG, 1X/DAY
     Route: 062
     Dates: start: 20081114

REACTIONS (2)
  - DEATH [None]
  - HYPOTHYROIDISM [None]
